FAERS Safety Report 7281461-X (Version None)
Quarter: 2011Q1

REPORT INFORMATION
  Report Type: 
  Country: None (occurrence: None)
  Receive Date: 20110208
  Receipt Date: 20110125
  Transmission Date: 20110831
  Serious: Yes (Other)
  Sender: FDA-Public Use
  Company Number: PHHY2011MX06853

PATIENT
  Sex: Female

DRUGS (6)
  1. DIOVAN [Suspect]
     Dosage: 320 MG, ONE TABLET DAILY
     Dates: start: 20070901
  2. CO-DIOVAN [Suspect]
     Indication: HYPERTENSION
     Dosage: 160/12.5 MG, ONE TABLET  DAILY
     Route: 048
     Dates: start: 20060101
  3. ISOSORBIDE DINITRATE [Concomitant]
  4. LOGIMAX [Suspect]
     Dosage: UNK
     Dates: start: 20070901
  5. GLYCERYL TRINITRATE [Concomitant]
  6. NIFEDIPINE [Concomitant]

REACTIONS (3)
  - CEREBROVASCULAR ACCIDENT [None]
  - BLOOD PRESSURE INCREASED [None]
  - DEPRESSION [None]
